FAERS Safety Report 10158620 (Version 1)
Quarter: 2014Q2

REPORT INFORMATION
  Report Type: Report from Study
  Country: CA (occurrence: CA)
  Receive Date: 20140508
  Receipt Date: 20140508
  Transmission Date: 20141212
  Serious: Yes (Other)
  Sender: FDA-Public Use
  Company Number: CA-ROCHE-1394203

PATIENT
  Sex: Male

DRUGS (4)
  1. PEGASYS [Suspect]
     Indication: CHRONIC HEPATITIS C
     Route: 058
     Dates: start: 20131023, end: 20140423
  2. COPEGUS [Suspect]
     Indication: CHRONIC HEPATITIS C
     Dosage: DAILY (49 TABLETS/WEEK)
     Route: 048
     Dates: start: 20131023, end: 20140429
  3. VICTRELIS [Suspect]
     Indication: CHRONIC HEPATITIS C
     Route: 048
     Dates: start: 20131121, end: 20140429
  4. SPIRIVA [Suspect]
     Indication: PULMONARY SARCOIDOSIS
     Route: 065
     Dates: end: 201311

REACTIONS (2)
  - Viral load increased [Unknown]
  - Aphonia [Not Recovered/Not Resolved]
